FAERS Safety Report 13383204 (Version 2)
Quarter: 2017Q3

REPORT INFORMATION
  Report Type: Spontaneous
  Country: US (occurrence: US)
  Receive Date: 20170329
  Receipt Date: 20170726
  Transmission Date: 20171127
  Serious: Yes (Other)
  Sender: FDA-Public Use
  Company Number: US-CLOVIS ONCOLOGY-CLO-2017-000030

PATIENT
  Sex: Female

DRUGS (4)
  1. NEXIUM [Concomitant]
     Active Substance: ESOMEPRAZOLE MAGNESIUM
     Indication: PRODUCT USED FOR UNKNOWN INDICATION
  2. AMLODIPINE [Concomitant]
     Active Substance: AMLODIPINE BESYLATE
     Indication: BLOOD PRESSURE INCREASED
     Dosage: UNK MG, UNK
  3. PROTONIX [Concomitant]
     Active Substance: PANTOPRAZOLE SODIUM
     Indication: PRODUCT USED FOR UNKNOWN INDICATION
  4. RUBRACA [Suspect]
     Active Substance: RUCAPARIB CAMSYLATE
     Indication: OVARIAN CANCER
     Dosage: 600 MG, BID
     Route: 048

REACTIONS (13)
  - Drug intolerance [Not Recovered/Not Resolved]
  - Gastrointestinal disorder [Unknown]
  - Adverse drug reaction [Unknown]
  - Diabetes mellitus [Unknown]
  - Frequent bowel movements [Unknown]
  - Carbohydrate antigen 125 increased [Unknown]
  - Nausea [Unknown]
  - Fatigue [Unknown]
  - Blood pressure increased [Not Recovered/Not Resolved]
  - Cardiac flutter [Not Recovered/Not Resolved]
  - Gastrooesophageal reflux disease [Not Recovered/Not Resolved]
  - Flatulence [Not Recovered/Not Resolved]
  - Alopecia [Unknown]
